FAERS Safety Report 25740308 (Version 2)
Quarter: 2025Q4

REPORT INFORMATION
  Report Type: Spontaneous
  Country: US (occurrence: US)
  Receive Date: 20250829
  Receipt Date: 20251231
  Transmission Date: 20260117
  Serious: No
  Sender: BRISTOL-MYERS SQUIBB COMPANY
  Company Number: US-BRISTOL-MYERS SQUIBB COMPANY-2025-119832

PATIENT
  Age: 78 Year
  Sex: Female

DRUGS (2)
  1. LENALIDOMIDE [Suspect]
     Active Substance: LENALIDOMIDE
     Indication: Plasma cell myeloma
     Dosage: TAKE 1 WHOLE CAPSULE AT AROUND SAME TIME DAILY WITH WATER W/ OR W/O FOOD FOR 2 WEEKS ON THEN 1 WEEK OFF
     Route: 048
  2. LENALIDOMIDE [Suspect]
     Active Substance: LENALIDOMIDE
     Dosage: TAKE 1 WHOLE CAPSULE AT AROUND SAME TIME DAILY WITH WATER W/ OR W/O FOOD FOR 2 WEEKS ON THEN 1 WEEK OFF
     Route: 048

REACTIONS (2)
  - Illness [Recovering/Resolving]
  - Product administration interrupted [Unknown]
